FAERS Safety Report 10022451 (Version 1)
Quarter: 2014Q1

REPORT INFORMATION
  Report Type: Report from Study
  Country: KR (occurrence: KR)
  Receive Date: 20140319
  Receipt Date: 20140319
  Transmission Date: 20141002
  Serious: Yes (Hospitalization)
  Sender: FDA-Public Use
  Company Number: KR-SA-2014SA033993

PATIENT
  Age: 39 Year
  Sex: Male

DRUGS (7)
  1. RENAGEL [Suspect]
     Indication: HYPERPHOSPHATAEMIA
     Route: 048
     Dates: start: 20120110
  2. GASMOTIN [Concomitant]
     Route: 048
     Dates: start: 20120614
  3. ADALAT OROS [Concomitant]
     Route: 048
     Dates: start: 20101221
  4. PRITOR [Concomitant]
     Route: 048
     Dates: start: 20101221
  5. ASCORBIC ACID/FOLIC ACID/VITAMIN B NOS [Concomitant]
     Dates: start: 20101221
  6. CALCITRIOL [Concomitant]
     Route: 048
     Dates: start: 20111122
  7. REGPARA [Concomitant]
     Dates: start: 20120626, end: 20120806

REACTIONS (1)
  - Epistaxis [Unknown]
